FAERS Safety Report 6671115-2 (Version None)
Quarter: 2010Q2

REPORT INFORMATION
  Report Type: 
  Country: None (occurrence: None)
  Receive Date: 20100407
  Receipt Date: 20100325
  Transmission Date: 20101027
  Serious: Yes (Hospitalization, Other)
  Sender: FDA-Public Use
  Company Number: PHHY2010JP16750

PATIENT
  Age: 17 Year
  Sex: Female

DRUGS (2)
  1. TEGRETOL [Suspect]
     Indication: EPILEPSY
     Route: 048
  2. POTASSIUM BROMIDE [Concomitant]

REACTIONS (10)
  - BLOOD CALCIUM DECREASED [None]
  - BLOOD PARATHYROID HORMONE INCREASED [None]
  - DISSEMINATED INTRAVASCULAR COAGULATION [None]
  - HYPOPHOSPHATAEMIA [None]
  - PNEUMONIA [None]
  - PYREXIA [None]
  - SEPSIS [None]
  - SPUTUM INCREASED [None]
  - VITAMIN D DECREASED [None]
  - VITAMIN D DEFICIENCY [None]
